FAERS Safety Report 10175275 (Version 1)
Quarter: 2014Q2

REPORT INFORMATION
  Report Type: Spontaneous
  Country: US (occurrence: US)
  Receive Date: 20140515
  Receipt Date: 20140515
  Transmission Date: 20141212
  Serious: No
  Sender: FDA-Public Use
  Company Number: US-VIVUS-2014V1000132

PATIENT
  Sex: Female
  Weight: 88.98 kg

DRUGS (3)
  1. QSYMIA 7.5MG/46MG [Suspect]
     Indication: WEIGHT DECREASED
     Route: 048
     Dates: start: 201312, end: 2014
  2. QSYMIA 3.75MG/23MG [Suspect]
     Indication: WEIGHT DECREASED
     Route: 048
     Dates: start: 201311, end: 201311
  3. SYNTHROID [Concomitant]
     Indication: HYPOTHYROIDISM
     Route: 048

REACTIONS (2)
  - Sinusitis [Not Recovered/Not Resolved]
  - Bronchitis [Not Recovered/Not Resolved]
